FAERS Safety Report 11232294 (Version 1)
Quarter: 2015Q3

REPORT INFORMATION
  Report Type: Spontaneous
  Country: DE (occurrence: DE)
  Receive Date: 20150701
  Receipt Date: 20150701
  Transmission Date: 20151125
  Serious: Yes (Other)
  Sender: FDA-Public Use
  Company Number: DE-INCYTE CORPORATION-2015IN002358

PATIENT

DRUGS (1)
  1. JAKAFI [Suspect]
     Active Substance: RUXOLITINIB
     Indication: PRODUCT USED FOR UNKNOWN INDICATION
     Dosage: UNKNOWN
     Route: 065
     Dates: start: 20141027

REACTIONS (4)
  - Angina pectoris [Unknown]
  - Gamma-glutamyltransferase abnormal [Unknown]
  - Blood lactate dehydrogenase abnormal [Unknown]
  - Cardiovascular disorder [Unknown]
